FAERS Safety Report 5401985-7 (Version None)
Quarter: 2007Q3

REPORT INFORMATION
  Report Type: 
  Country: None (occurrence: None)
  Receive Date: 20070731
  Receipt Date: 20070723
  Transmission Date: 20080115
  Serious: Yes (Hospitalization)
  Sender: FDA-Public Use
  Company Number: JP-GILEAD-2007-0012527

PATIENT
  Sex: Female

DRUGS (12)
  1. HEPSERA [Suspect]
     Indication: HEPATITIS B
     Route: 048
     Dates: start: 20070621
  2. HEPSERA [Suspect]
     Route: 048
     Dates: start: 20051213, end: 20070621
  3. LAMIVUDINE [Concomitant]
  4. FAMOTIDINE [Concomitant]
  5. MUCOSTA [Concomitant]
  6. PORTALAK [Concomitant]
  7. LIVACT [Concomitant]
  8. URSO 250 [Concomitant]
  9. ALFAROL [Concomitant]
  10. RISEDRONATE SODIUM [Concomitant]
     Dates: end: 20070612
  11. MAGMITT [Concomitant]
     Dates: end: 20070605
  12. SENNOSIDES [Concomitant]

REACTIONS (7)
  - ARTHRALGIA [None]
  - BACK PAIN [None]
  - FANCONI SYNDROME [None]
  - HYPOPHOSPHATAEMIA [None]
  - OEDEMA PERIPHERAL [None]
  - OSTEOMALACIA [None]
  - PAIN IN EXTREMITY [None]
